FAERS Safety Report 7401693-7 (Version None)
Quarter: 2011Q1

REPORT INFORMATION
  Report Type: 
  Country: None (occurrence: None)
  Receive Date: 20110329
  Receipt Date: 20110314
  Transmission Date: 20110831
  Serious: Yes (Hospitalization)
  Sender: FDA-Public Use
  Company Number: FK201100476

PATIENT
  Sex: Male

DRUGS (6)
  1. ACETYLCYSTEINE [Concomitant]
  2. DIGOXIN [Concomitant]
  3. ENOXAPARIN SODIUM [Concomitant]
  4. GENTAMICIN [Suspect]
     Indication: INFECTION
     Dosage: 240 MG, 1 D, INTRAVENOUS
     Route: 042
     Dates: start: 20110202, end: 20110204
  5. FUROSEMIDE [Concomitant]
  6. VANCOMYCIN [Concomitant]

REACTIONS (1)
  - VASCULITIS [None]
